FAERS Safety Report 25505523 (Version 2)
Quarter: 2025Q4

REPORT INFORMATION
  Report Type: Spontaneous
  Country: CA (occurrence: CA)
  Receive Date: 20250702
  Receipt Date: 20251016
  Transmission Date: 20260118
  Serious: Yes (Life-Threatening, Other)
  Sender: Kenvue
  Company Number: CA-KENVUE-20250610940

PATIENT

DRUGS (8)
  1. IBUPROFEN [Suspect]
     Active Substance: IBUPROFEN
     Indication: Pain
     Dosage: 300 MILLIGRAM (1 EVERY 6 HOURS)
     Route: 048
     Dates: start: 20240909
  2. KETOROLAC [Suspect]
     Active Substance: KETOROLAC TROMETHAMINE
     Indication: Pain
     Dosage: 15 MILLIGRAM (1 EVERY 6 HOURS)
     Route: 042
     Dates: start: 20240911
  3. ACETAMINOPHEN [Concomitant]
     Active Substance: ACETAMINOPHEN
     Indication: Product used for unknown indication
     Dosage: 400 MILLIGRAM, EVERY 4 HOURS AS NEEDED
     Route: 048
     Dates: start: 20240908, end: 20240919
  4. CEFOTAXIME [Concomitant]
     Active Substance: CEFOTAXIME SODIUM
     Indication: Product used for unknown indication
     Dosage: 1500 TO 2000 MG EVERY 8 HOURS
     Route: 042
     Dates: start: 20240908, end: 20240914
  5. CLARITHROMYCIN [Concomitant]
     Active Substance: CLARITHROMYCIN
     Indication: Product used for unknown indication
     Dosage: 220 MILLIGRAM, TWICE A DAY
     Route: 048
     Dates: start: 20240909, end: 20240911
  6. FOLIC ACID [Concomitant]
     Active Substance: FOLIC ACID
     Indication: Product used for unknown indication
     Dosage: 1 MILLIGRAM DAILY (DIE)
     Route: 048
     Dates: start: 20240907
  7. MORPHINE [Concomitant]
     Active Substance: MORPHINE
     Indication: Product used for unknown indication
     Dosage: 3 MILLIGRAM, EVERY 3 HOUR
     Route: 042
     Dates: start: 20240910, end: 20240911
  8. POLYETHYLENE GLYCOL [Concomitant]
     Active Substance: POLYETHYLENE GLYCOL
     Indication: Product used for unknown indication
     Dosage: 17 GRAM DAILY (DIE)
     Route: 048
     Dates: start: 20240910

REACTIONS (1)
  - Gastritis haemorrhagic [Recovered/Resolved]

NARRATIVE: CASE EVENT DATE: 20240912
